FAERS Safety Report 5368608-7 (Version None)
Quarter: 2007Q2

REPORT INFORMATION
  Report Type: 
  Country: None (occurrence: None)
  Receive Date: 20070625
  Receipt Date: 20070613
  Transmission Date: 20071010
  Serious: Yes (Hospitalization)
  Sender: FDA-Public Use
  Company Number: US-JNJFOC-20070603696

PATIENT
  Sex: Male
  Weight: 113.4 kg

DRUGS (1)
  1. RISPERDAL CONSTA [Suspect]
     Indication: SCHIZOPHRENIA
     Route: 030

REACTIONS (4)
  - DEPRESSION [None]
  - FEELING ABNORMAL [None]
  - MUSCLE TWITCHING [None]
  - SUICIDAL IDEATION [None]
